FAERS Safety Report 5379259-2 (Version None)
Quarter: 2007Q3

REPORT INFORMATION
  Report Type: 
  Country: None (occurrence: None)
  Receive Date: 20070705
  Receipt Date: 20070626
  Transmission Date: 20080115
  Serious: Yes (Other)
  Sender: FDA-Public Use
  Company Number: FR-PFIZER INC-2007053322

PATIENT
  Sex: Female
  Weight: 40 kg

DRUGS (2)
  1. LYRICA [Suspect]
     Indication: RESTLESS LEGS SYNDROME
     Dates: start: 20070625, end: 20070601
  2. INSULIN [Concomitant]

REACTIONS (2)
  - DYSSTASIA [None]
  - SOMNOLENCE [None]
